FAERS Safety Report 5051568-6 (Version None)
Quarter: 2006Q3

REPORT INFORMATION
  Report Type: 
  Country: None (occurrence: None)
  Receive Date: 20060711
  Receipt Date: 20060619
  Transmission Date: 20061208
  Serious: Yes (Other)
  Sender: FDA-Public Use
  Company Number: US200606004311

PATIENT
  Age: 51 Year
  Sex: Female

DRUGS (1)
  1. CYMBALTA [Suspect]

REACTIONS (1)
  - GASTRIC BYPASS [None]
